FAERS Safety Report 10916282 (Version 1)
Quarter: 2015Q1

REPORT INFORMATION
  Report Type: Spontaneous
  Country: US (occurrence: IT)
  Receive Date: 20150316
  Receipt Date: 20150316
  Transmission Date: 20150721
  Serious: Yes (Hospitalization, Other)
  Sender: FDA-Public Use
  Company Number: IT-FRI-1000075149

PATIENT
  Age: 73 Year
  Sex: Female

DRUGS (2)
  1. ASENAPINE [Suspect]
     Active Substance: ASENAPINE
     Indication: BIPOLAR DISORDER
     Route: 048
  2. DEPAKIN [Suspect]
     Active Substance: VALPROATE SODIUM
     Route: 065

REACTIONS (2)
  - Rhabdomyolysis [Unknown]
  - Neurological examination abnormal [Unknown]

NARRATIVE: CASE EVENT DATE: 20150304
